FAERS Safety Report 19172434 (Version 1)
Quarter: 2021Q2

REPORT INFORMATION
  Report Type: Spontaneous
  Country: GB (occurrence: GB)
  Receive Date: 20210423
  Receipt Date: 20210423
  Transmission Date: 20210717
  Serious: Yes (Other)
  Sender: FDA-Public Use
  Company Number: GB-DRREDDYS-GER/UKI/21/0134569

PATIENT
  Age: 49 Year
  Sex: Female
  Weight: 83 kg

DRUGS (11)
  1. OMEPRAZOLE. [Concomitant]
     Active Substance: OMEPRAZOLE
     Indication: ILL-DEFINED DISORDER
     Dosage: TAKE ONE DAILY
     Dates: start: 20210412
  2. SODIUM CROMOGLICATE [Concomitant]
     Active Substance: CROMOLYN SODIUM
     Indication: ILL-DEFINED DISORDER
     Dosage: ONE DROP 4 TIMES/DAY
     Dates: start: 20210329, end: 20210408
  3. TRANEXAMIC ACID. [Concomitant]
     Active Substance: TRANEXAMIC ACID
     Indication: ILL-DEFINED DISORDER
     Dosage: 2 TO BE TAKEN THREE TIMES DAILY FOR UP TO FOUR ...
     Dates: start: 20210209
  4. EMULSIFYING WAX [Concomitant]
     Indication: ILL-DEFINED DISORDER
     Dosage: USE AS DIRECTED
     Dates: start: 20210406
  5. FERROGRAD [Concomitant]
     Active Substance: FERROUS SULFATE
     Indication: ILL-DEFINED DISORDER
     Dosage: TAKE ONE TWICA A DAY ? PLEASE DISPENSE GERROGRA...
     Dates: start: 20210113
  6. CETRABEN EMOLLIENT CREAM [Concomitant]
     Indication: PRODUCT USED FOR UNKNOWN INDICATION
     Dosage: USE AS DIRECTED
     Dates: start: 20210406
  7. FEXOFENADINE [Suspect]
     Active Substance: FEXOFENADINE HYDROCHLORIDE
     Indication: ILL-DEFINED DISORDER
     Dates: start: 20210329
  8. FERROUS FUMARATE [Concomitant]
     Active Substance: FERROUS FUMARATE
     Indication: ILL-DEFINED DISORDER
     Dosage: TAKE ONE 3 TIMES/DAY
     Dates: start: 20210410
  9. FUSIDIC ACID [Concomitant]
     Active Substance: FUSIDIC ACID
     Indication: ILL-DEFINED DISORDER
     Dosage: THREE TIMES A DAY FOR FIVE TO SEVEN DAYS
     Dates: start: 20210120, end: 20210127
  10. PREDNISOLONE. [Concomitant]
     Active Substance: PREDNISOLONE
     Indication: ILL-DEFINED DISORDER
     Dosage: 6 DAILY FOR A WEEK AND THEN 4 DAILY FOR A WEEK ...
     Dates: start: 20210410, end: 20210411
  11. CHLORPHENAMINE [Concomitant]
     Active Substance: CHLORPHENIRAMINE MALEATE
     Indication: ILL-DEFINED DISORDER
     Dosage: TAKE ONE EVERY 4?6 HRS
     Dates: start: 20210330, end: 20210409

REACTIONS (4)
  - Rash [Unknown]
  - Pruritus [Recovering/Resolving]
  - Swelling face [Recovering/Resolving]
  - Insomnia [Unknown]

NARRATIVE: CASE EVENT DATE: 20210330
